FAERS Safety Report 12843648 (Version 2)
Quarter: 2017Q2

REPORT INFORMATION
  Report Type: Spontaneous
  Country: GB (occurrence: GB)
  Receive Date: 20161013
  Receipt Date: 20170530
  Transmission Date: 20170830
  Serious: Yes (Death, Other)
  Sender: FDA-Public Use
  Company Number: GB-RECORDATI RARE DISEASES-GB-R13005-16-00272

PATIENT
  Age: 14 Day
  Sex: Female

DRUGS (2)
  1. IBUPROFEN. [Suspect]
     Active Substance: IBUPROFEN
     Route: 042
     Dates: start: 20160810, end: 20160810
  2. IBUPROFEN. [Suspect]
     Active Substance: IBUPROFEN
     Indication: PATENT DUCTUS ARTERIOSUS
     Route: 042
     Dates: start: 20160809, end: 20160809

REACTIONS (7)
  - Necrotising enterocolitis neonatal [Fatal]
  - Rectal haemorrhage [Not Recovered/Not Resolved]
  - Coagulopathy [Not Recovered/Not Resolved]
  - Multiple organ dysfunction syndrome [Unknown]
  - Abdominal distension [Not Recovered/Not Resolved]
  - Sepsis [Not Recovered/Not Resolved]
  - Malaise [Not Recovered/Not Resolved]

NARRATIVE: CASE EVENT DATE: 20160811
